FAERS Safety Report 16086191 (Version 5)
Quarter: 2019Q3

REPORT INFORMATION
  Report Type: Report from Study
  Country: ZA (occurrence: ZA)
  Receive Date: 20190318
  Receipt Date: 20190820
  Transmission Date: 20191004
  Serious: Yes (Life-Threatening)
  Sender: FDA-Public Use
  Company Number: ZA-SA-2019SA058542

PATIENT
  Age: 62 Year
  Sex: Female

DRUGS (9)
  1. METFORMIN [Concomitant]
     Active Substance: METFORMIN HYDROCHLORIDE
     Dosage: 500 MG, QD
     Dates: start: 20190131
  2. AMILORETIC H.S. [Concomitant]
     Dosage: 50 MG, QD (BEFORE BREAKFAST)
     Dates: start: 20040228
  3. NO STUDY DRUG GIVEN [Suspect]
     Active Substance: INVESTIGATIONAL PRODUCT
  4. DIAGLUCIDE [Concomitant]
     Active Substance: GLICLAZIDE
     Dosage: 60 MG, QD (BEFORE BREAKFAST)
     Dates: start: 20040228
  5. OPTISULIN (INSULIN GLARGINE) [Suspect]
     Active Substance: INSULIN GLARGINE
     Dosage: 6 U, HS
     Dates: start: 20190118
  6. METFORMIN [Concomitant]
     Active Substance: METFORMIN HYDROCHLORIDE
     Dosage: 500 MG, BID (AFTER SUPPER AND AFTER BREAKFAST)
     Dates: start: 20190131
  7. B BLOCK [Concomitant]
     Dosage: 50 MG, QD (BEFORE BREAKFAST)
     Dates: start: 20040228
  8. ENALAPRIL UNICORN [Concomitant]
     Dosage: 10 MG, QD (BEFORE BREAKFAST)
     Dates: start: 20040228
  9. OPTISULIN (INSULIN GLARGINE) [Suspect]
     Active Substance: INSULIN GLARGINE
     Indication: TYPE 2 DIABETES MELLITUS
     Dosage: 8 U, HS
     Dates: start: 20190118

REACTIONS (4)
  - Dizziness [Unknown]
  - Hypoglycaemia [Recovered/Resolved]
  - Hypoglycaemia [Not Recovered/Not Resolved]
  - Hypoglycaemia [Not Recovered/Not Resolved]

NARRATIVE: CASE EVENT DATE: 20190223
